FAERS Safety Report 17745901 (Version 1)
Quarter: 2020Q2

REPORT INFORMATION
  Report Type: Spontaneous
  Country: US (occurrence: US)
  Receive Date: 20200505
  Receipt Date: 20200505
  Transmission Date: 20200714
  Serious: No
  Sender: FDA-Public Use
  Company Number: US-SA-2020SA115435

PATIENT
  Age: 49 Year
  Sex: Male
  Weight: 74.83 kg

DRUGS (6)
  1. EPIPEN [Concomitant]
     Active Substance: EPINEPHRINE
  2. CEREZYME [Suspect]
     Active Substance: IMIGLUCERASE
     Indication: GAUCHER^S DISEASE
     Dosage: 4800 U, Q3W
     Route: 042
     Dates: start: 20130509
  3. SODIUM CHLORIDE. [Concomitant]
     Active Substance: SODIUM CHLORIDE
  4. CEREZYME [Suspect]
     Active Substance: IMIGLUCERASE
     Indication: LIPIDOSIS
  5. CALCIUM [Concomitant]
     Active Substance: CALCIUM
  6. STERILE WATER [Concomitant]
     Active Substance: WATER

REACTIONS (3)
  - SARS-CoV-2 test positive [Unknown]
  - Inappropriate schedule of product administration [Unknown]
  - Unevaluable event [Unknown]
